FAERS Safety Report 16500492 (Version 1)
Quarter: 2019Q3

REPORT INFORMATION
  Report Type: Spontaneous
  Country: US (occurrence: US)
  Receive Date: 20190701
  Receipt Date: 20190701
  Transmission Date: 20191004
  Serious: Yes (Other)
  Sender: FDA-Public Use
  Company Number: US-CHURCH + DWIGHT CO., INC.-2070085

PATIENT
  Age: 55 Year
  Sex: Female

DRUGS (1)
  1. COMPLETE CARE FLUORIDE ANTICAVITY TOOTHPASTE [Suspect]
     Active Substance: SODIUM FLUORIDE
     Route: 048

REACTIONS (1)
  - Photophobia [Recovered/Resolved]
